FAERS Safety Report 9643819 (Version 1)
Quarter: 2013Q4

REPORT INFORMATION
  Report Type: Spontaneous
  Country: JP (occurrence: JP)
  Receive Date: 20131024
  Receipt Date: 20131024
  Transmission Date: 20140711
  Serious: Yes (Hospitalization, Other)
  Sender: FDA-Public Use
  Company Number: JP-ASTRAZENECA-2013SE77948

PATIENT
  Age: 35 Year
  Sex: Female

DRUGS (8)
  1. QUETIAPINE [Suspect]
     Indication: SCHIZOPHRENIA
     Route: 048
  2. QUETIAPINE [Suspect]
     Indication: SCHIZOPHRENIA
     Route: 048
  3. ZOTEPINE [Suspect]
     Indication: SCHIZOPHRENIA
     Dosage: 50-100 MG IN ACCORDANCE WITH DISEASE CONDITIONS
     Route: 048
  4. RISPERIDONE [Suspect]
     Indication: SCHIZOPHRENIA
     Route: 048
  5. BIPERIDEN [Suspect]
     Route: 048
  6. PROMETHAZINE [Suspect]
     Route: 048
  7. ETIZOLAM [Suspect]
     Route: 048
  8. NITRAZEPAM [Suspect]
     Route: 048

REACTIONS (3)
  - Prescribed overdose [Unknown]
  - Megacolon [Unknown]
  - Constipation [Recovering/Resolving]
